FAERS Safety Report 9287108 (Version 2)
Quarter: 2013Q2

REPORT INFORMATION
  Report Type: Spontaneous
  Country: US (occurrence: None)
  Receive Date: 20130508
  Receipt Date: 20130610
  Transmission Date: 20140414
  Serious: Yes (Hospitalization)
  Sender: FDA-Public Use
  Company Number: ACO_35731_2013

PATIENT
  Age: 82 Year
  Sex: Male
  Weight: 79.4 kg

DRUGS (4)
  1. AMPYRA [Suspect]
     Indication: MULTIPLE SCLEROSIS
     Route: 048
  2. AMPYRA [Suspect]
     Indication: GAIT DISTURBANCE
     Route: 048
  3. PROVIGIL  (MODAFINIL) [Concomitant]
  4. HYDROCHLOROTHIAZIDE (HYDROCHLOROTHIAZIDE) [Concomitant]

REACTIONS (4)
  - Head injury [None]
  - Fall [None]
  - Dizziness [None]
  - Balance disorder [None]
